FAERS Safety Report 16168327 (Version 1)
Quarter: 2019Q2

REPORT INFORMATION
  Report Type: Report from Study
  Country: NL (occurrence: NL)
  Receive Date: 20190408
  Receipt Date: 20190408
  Transmission Date: 20190711
  Serious: Yes (Death)
  Sender: FDA-Public Use
  Company Number: PHHY2019NL079226

PATIENT
  Sex: Male

DRUGS (2)
  1. ZOMETA [Suspect]
     Active Substance: ZOLEDRONIC ACID
     Dosage: 1 DF, UNK (1.00 X PER 12 WEEKS)
     Route: 042
     Dates: start: 20151026
  2. ZOMETA [Suspect]
     Active Substance: ZOLEDRONIC ACID
     Indication: PROSTATE CANCER
     Dosage: 1 DF, UNK (1.00 X PER 12 WEEKS)
     Route: 042

REACTIONS (2)
  - Death [Fatal]
  - Inappropriate schedule of product administration [Unknown]
